FAERS Safety Report 10792418 (Version 1)
Quarter: 2015Q1

REPORT INFORMATION
  Report Type: Spontaneous
  Country: US (occurrence: US)
  Receive Date: 20150213
  Receipt Date: 20150213
  Transmission Date: 20150721
  Serious: No
  Sender: FDA-Public Use
  Company Number: US-GLAXOSMITHKLINE-A1082365A

PATIENT

DRUGS (10)
  1. ASPIRIN. [Concomitant]
     Active Substance: ASPIRIN
  2. VENTOLIN [Suspect]
     Active Substance: ALBUTEROL SULFATE
     Indication: CHRONIC OBSTRUCTIVE PULMONARY DISEASE
     Route: 055
     Dates: start: 2010
  3. NIACIN. [Concomitant]
     Active Substance: NIACIN
  4. OMEPRAZOLE. [Concomitant]
     Active Substance: OMEPRAZOLE
  5. VITAMIN B12 [Concomitant]
     Active Substance: CYANOCOBALAMIN
  6. VITAMIN E [Concomitant]
     Active Substance: .ALPHA.-TOCOPHEROL
  7. VITAMIN B1 [Concomitant]
     Active Substance: THIAMINE HYDROCHLORIDE
  8. B6 [Concomitant]
     Active Substance: PYRIDOXINE HYDROCHLORIDE
  9. FOLIC ACID. [Concomitant]
     Active Substance: FOLIC ACID
  10. UNKNOWN MEDICATION [Concomitant]
     Active Substance: UNSPECIFIED INGREDIENT

REACTIONS (12)
  - Gastrooesophageal reflux disease [Unknown]
  - Vocal cord polyp [Unknown]
  - Malaise [Unknown]
  - Vomiting [Unknown]
  - Cough [Unknown]
  - Dysphonia [Recovering/Resolving]
  - Polypectomy [Unknown]
  - Increased upper airway secretion [Unknown]
  - Constipation [Unknown]
  - Middle ear effusion [Unknown]
  - Sleep disorder [Unknown]
  - Blood pressure increased [Unknown]
